FAERS Safety Report 9154001 (Version 2)
Quarter: 2013Q1

REPORT INFORMATION
  Report Type: Spontaneous
  Country: US (occurrence: None)
  Receive Date: 20130307
  Receipt Date: 20130326
  Transmission Date: 20140127
  Serious: Yes (Death, Other)
  Sender: FDA-Public Use
  Company Number: 2013P1002646

PATIENT
  Age: 28 Year
  Sex: Male

DRUGS (29)
  1. FENTANYL CITRATE [Suspect]
     Indication: ANALGESIC THERAPY
     Route: 042
     Dates: start: 20130119, end: 20130129
  2. MIDAZOLAM [Suspect]
     Indication: SEDATION
     Route: 042
     Dates: start: 20130129
  3. APAP [Concomitant]
  4. AMP/SULBACTAM [Concomitant]
  5. BROMOCRIPTINE [Concomitant]
  6. CEFAZOLIN [Concomitant]
  7. CEFEPIME [Concomitant]
  8. CHLORHEXIDINE [Concomitant]
  9. CISATRACURIUM DRIP [Concomitant]
  10. DOCUSATE [Concomitant]
  11. HEPARIN [Concomitant]
  12. INSULIN REGULAR SLIDING SCALE [Concomitant]
  13. IOHEXOL [Concomitant]
  14. LORAZEPAM [Concomitant]
  15. MAGNESIUM SULFATE [Concomitant]
  16. MANNITOL [Concomitant]
  17. NORMAL SALINE WITH KCL [Concomitant]
  18. PANTOPRAZOLE [Concomitant]
  19. PHENYTOIN [Concomitant]
  20. KCL [Concomitant]
  21. NEUTRAPHOS [Concomitant]
  22. PROPOFOL DRIP [Concomitant]
  23. PROPRANOLOL [Concomitant]
  24. SENNA [Concomitant]
  25. SODIUM CHLORIDE [Concomitant]
  26. SODIUM CHLORIDE WITH KCL [Concomitant]
  27. TDAP [Concomitant]
  28. VANCOMYCIN [Concomitant]
  29. VASOPRESSIN DRIP [Concomitant]

REACTIONS (7)
  - Pyrexia [None]
  - Product contamination [None]
  - Cardiac arrest [None]
  - Diabetes insipidus [None]
  - Pneumonia [None]
  - Hypotension [None]
  - Haemodynamic instability [None]
